FAERS Safety Report 24630903 (Version 1)
Quarter: 2024Q4

REPORT INFORMATION
  Report Type: Spontaneous
  Country: US (occurrence: None)
  Receive Date: 20241115
  Receipt Date: 20241115
  Transmission Date: 20250115
  Serious: Yes (unspecified)
  Sender: Public
  Company Number: None

PATIENT
  Age: 54 Year
  Sex: Female
  Weight: 59.85 kg

DRUGS (1)
  1. ICY HOT [Suspect]
     Active Substance: MENTHOL\METHYL SALICYLATE
     Indication: Muscle spasms
     Dates: start: 20241109, end: 20241112

REACTIONS (1)
  - Burns second degree [None]

NARRATIVE: CASE EVENT DATE: 20241109
